FAERS Safety Report 8261198-0 (Version None)
Quarter: 2012Q2

REPORT INFORMATION
  Report Type: 
  Country: None (occurrence: None)
  Receive Date: 20120402
  Receipt Date: 20120308
  Transmission Date: 20120825
  Serious: Yes (Hospitalization)
  Sender: FDA-Public Use
  Company Number: PC0000735

PATIENT
  Age: 82 Year
  Sex: Female
  Weight: 70.7611 kg

DRUGS (19)
  1. OXYBUTYNIN [Concomitant]
  2. LOSARTAN POTASSIUM [Concomitant]
  3. ASPIRIN [Concomitant]
  4. CALCIUM W/VIT D [Concomitant]
  5. ROSUVASTATIN [Concomitant]
  6. GLUCOSAMINE-CHONDROITIN [Concomitant]
  7. TRAMADOL HCL [Concomitant]
  8. FUROSEMIDE [Concomitant]
  9. FLUDEOXYGLUCOSE [Suspect]
     Indication: DIAGNOSTIC PROCEDURE
     Dosage: 16.4MCI IV 042
     Route: 042
     Dates: start: 20120109
  10. CARVEDILOL [Concomitant]
  11. LEVOTHYROXINE SODIUM [Concomitant]
  12. LATANOPROST [Concomitant]
  13. ALENDRONATE SODIUM [Concomitant]
  14. ACETAMINOPHEN [Concomitant]
  15. CEHPHALEXIN [Concomitant]
  16. ESOMEPTRAZOLE [Concomitant]
  17. WARFARIN SODIUM [Concomitant]
  18. FAMOTIDINE [Concomitant]
  19. BRIMONIDINE TARTRATE [Concomitant]

REACTIONS (5)
  - ANAPHYLACTIC REACTION [None]
  - CONTRAST MEDIA REACTION [None]
  - SENSATION OF FOREIGN BODY [None]
  - DYSPHONIA [None]
  - STRIDOR [None]
